FAERS Safety Report 7760091-7 (Version None)
Quarter: 2011Q3

REPORT INFORMATION
  Report Type: 
  Country: None (occurrence: None)
  Receive Date: 20110919
  Receipt Date: 20110914
  Transmission Date: 20111222
  Serious: Yes (Other)
  Sender: FDA-Public Use
  Company Number: CHPA2011US12458

PATIENT
  Age: 77 Year
  Sex: Male

DRUGS (1)
  1. MYOFLEX [Suspect]
     Indication: MYALGIA
     Dosage: UNK DF, UNK
     Route: 061

REACTIONS (3)
  - PROSTATE CANCER [None]
  - CARDIAC DISORDER [None]
  - VASCULAR GRAFT [None]
